FAERS Safety Report 7093434-0 (Version None)
Quarter: 2010Q4

REPORT INFORMATION
  Report Type: 
  Country: None (occurrence: None)
  Receive Date: 20101110
  Receipt Date: 20101027
  Transmission Date: 20110411
  Serious: Yes (Other)
  Sender: FDA-Public Use
  Company Number: NL-AMGEN-QUU433489

PATIENT

DRUGS (6)
  1. NEULASTA [Suspect]
     Indication: CHEMOTHERAPY
     Dosage: 6 MG, UNK
     Dates: start: 20100729
  2. GRANISETRON HCL [Concomitant]
  3. APREPITANT [Concomitant]
  4. CIPROFLOXACIN [Concomitant]
  5. DEXAMETHASONE [Concomitant]
  6. UNSPECIFIED ANTINEOPLASTIC AGENT [Concomitant]

REACTIONS (3)
  - BACK PAIN [None]
  - HEADACHE [None]
  - PAIN IN EXTREMITY [None]
